FAERS Safety Report 9506460 (Version 2)
Quarter: 2013Q3

REPORT INFORMATION
  Report Type: Report from Study
  Country: US (occurrence: US)
  Receive Date: 20130906
  Receipt Date: 20130918
  Transmission Date: 20140515
  Serious: Yes (Other)
  Sender: FDA-Public Use
  Company Number: PHEH2013US018672

PATIENT
  Sex: Female

DRUGS (2)
  1. GILENYA [Suspect]
     Indication: MULTIPLE SCLEROSIS
     Dosage: 0.5 MG, QD
     Route: 048
     Dates: start: 20130628
  2. PROVIGIL//MODAFINIL [Concomitant]
     Indication: FATIGUE

REACTIONS (3)
  - Optic neuritis [Recovering/Resolving]
  - Fatigue [Recovering/Resolving]
  - Migraine [Unknown]
